FAERS Safety Report 4721336-0 (Version None)
Quarter: 2005Q3

REPORT INFORMATION
  Report Type: 
  Country: None (occurrence: None)
  Receive Date: 20050721
  Receipt Date: 20040629
  Transmission Date: 20060218
  Serious: No
  Sender: FDA-Public Use
  Company Number: US-BRISTOL-MYERS SQUIBB COMPANY-12628467

PATIENT
  Age: 73 Year
  Sex: Female
  Weight: 91 kg

DRUGS (7)
  1. COUMADIN [Suspect]
     Indication: CARDIAC FIBRILLATION
     Dosage: BRAND:23-JUN-2004 TO 23-JUN-2004-TOOK 1 TABLET; SWITCH TO GENERIC VERSION ON 24-JUN-2004.
     Route: 048
     Dates: start: 20040623
  2. LIPITOR [Suspect]
     Dates: end: 20040623
  3. RYTHMOL [Concomitant]
     Dosage: STRENGTH UNKNOWN- EVERY 8 HOURS
  4. CAPTOPRIL [Concomitant]
     Indication: BLOOD PRESSURE
     Dosage: INCREASED TO 25MG TID
  5. CARTIA XT [Concomitant]
     Indication: BLOOD PRESSURE
     Dosage: INCREASED TO 240MG ONCE DAILY
  6. FLUVOXAMINE [Concomitant]
  7. HYDROCHLOROTHIAZIDE [Concomitant]
     Dosage: ^FOR A LONG TIME^

REACTIONS (1)
  - HYPERTENSION [None]
